FAERS Safety Report 9495729 (Version 1)
Quarter: 2013Q3

REPORT INFORMATION
  Report Type: Spontaneous
  Country: US (occurrence: US)
  Receive Date: 20130903
  Receipt Date: 20130903
  Transmission Date: 20140515
  Serious: Yes (Death, Other)
  Sender: FDA-Public Use
  Company Number: CHPA2013US013550

PATIENT
  Age: 98 Year
  Sex: Female

DRUGS (1)
  1. KERI ORIGINAL [Suspect]
     Indication: THERAPEUTIC SKIN CARE TOPICAL
     Dosage: ALL OVER HER BODY , UNK
     Route: 061

REACTIONS (2)
  - Death [Fatal]
  - Bedridden [Unknown]
